FAERS Safety Report 13768324 (Version 1)
Quarter: 2017Q3

REPORT INFORMATION
  Report Type: Spontaneous
  Country: GR (occurrence: GR)
  Receive Date: 20170719
  Receipt Date: 20170719
  Transmission Date: 20171127
  Serious: Yes (Hospitalization)
  Sender: FDA-Public Use
  Company Number: GR-FRESENIUS KABI-FK201705971

PATIENT
  Sex: Female

DRUGS (2)
  1. MEROPENEM (MANUFACTURER UNKNOWN) [Suspect]
     Active Substance: MEROPENEM
     Indication: INFECTION
     Route: 065
  2. GENTAMICIN (MANUFACTURER UNKNOWN) [Suspect]
     Active Substance: GENTAMICIN
     Indication: INFECTION
     Route: 065

REACTIONS (1)
  - Candida infection [Recovered/Resolved]
